FAERS Safety Report 13367229 (Version 1)
Quarter: 2017Q1

REPORT INFORMATION
  Report Type: Spontaneous
  Country: GB (occurrence: GB)
  Receive Date: 20170324
  Receipt Date: 20170324
  Transmission Date: 20170429
  Serious: Yes (Other)
  Sender: FDA-Public Use
  Company Number: GB-TEVA-750966ISR

PATIENT
  Sex: Female

DRUGS (1)
  1. COPAXONE [Suspect]
     Active Substance: GLATIRAMER ACETATE
     Dosage: THE FORM STRENGTH IS UNKNOWN
     Route: 065

REACTIONS (7)
  - Gait disturbance [Unknown]
  - Paraesthesia [Unknown]
  - Memory impairment [Unknown]
  - Arthralgia [Unknown]
  - Abdominal pain upper [Unknown]
  - Contusion [Unknown]
  - Photophobia [Unknown]
